FAERS Safety Report 8348347-0 (Version None)
Quarter: 2012Q2

REPORT INFORMATION
  Report Type: 
  Country: None (occurrence: None)
  Receive Date: 20120507
  Receipt Date: 20120427
  Transmission Date: 20120825
  Serious: Yes (Hospitalization)
  Sender: FDA-Public Use
  Company Number: 1276160

PATIENT
  Age: 80 Year
  Sex: Female

DRUGS (7)
  1. CARBOPLATIN [Concomitant]
  2. DEXAMETHASONE SODIUM PHOSPHATE [Concomitant]
  3. PACLITAXEL [Suspect]
     Indication: OVARIAN CANCER
     Dosage: 95 MG, CYCLIC, INTRAVENOUS DRIP
     Route: 041
     Dates: start: 20120420, end: 20120420
  4. (TREMETON) [Concomitant]
  5. (NAVOBAN) [Concomitant]
  6. METHYLPREDNISOLONE [Concomitant]
  7. (RANIDIL) [Concomitant]

REACTIONS (2)
  - ERYTHEMA [None]
  - DYSPNOEA [None]
